FAERS Safety Report 18099551 (Version 3)
Quarter: 2021Q1

REPORT INFORMATION
  Report Type: Spontaneous
  Country: JP (occurrence: JP)
  Receive Date: 20200731
  Receipt Date: 20210226
  Transmission Date: 20210419
  Serious: Yes (Death)
  Sender: FDA-Public Use
  Company Number: JP-CELGENEUS-JPN-20200708366

PATIENT
  Age: 85 Year
  Sex: Male

DRUGS (1)
  1. REVLIMID [Suspect]
     Active Substance: LENALIDOMIDE
     Indication: PLASMA CELL MYELOMA
     Dosage: UNKNOWN
     Route: 048
     Dates: end: 20200616

REACTIONS (2)
  - Plasma cell myeloma [Fatal]
  - Abdominal discomfort [Unknown]

NARRATIVE: CASE EVENT DATE: 2020
